FAERS Safety Report 4757796-9 (Version None)
Quarter: 2005Q3

REPORT INFORMATION
  Report Type: 
  Country: None (occurrence: None)
  Receive Date: 20050830
  Receipt Date: 20050818
  Transmission Date: 20060218
  Serious: Yes (Hospitalization, Other)
  Sender: FDA-Public Use
  Company Number: 2005088980

PATIENT
  Age: 26 Year
  Sex: Male
  Weight: 73 kg

DRUGS (8)
  1. ZYVOX [Suspect]
     Indication: TUBERCULOSIS
     Dosage: 600 MG (600 MG, 1 IN 1 D), ORAL
     Route: 048
     Dates: start: 20050218
  2. PARA AMINOSALICYLIC ACID [Suspect]
     Indication: TUBERCULOSIS
     Dosage: 30 GRAM (10 GRAM, 3 IN 1 D), ORAL
     Route: 048
     Dates: start: 20050218
  3. DEXAMBUTOL (ETHAMBUTOL DIHYDROCHLORIDE [Suspect]
     Indication: TUBERCULOSIS
     Dosage: 1.5 GRAM (DAILY), ORAL
     Route: 048
     Dates: start: 20050201
  4. ZOPHREN (ONDANSETRON HYDROCHLORIDE) [Suspect]
     Indication: NAUSEA
     Dosage: (AS OCCASION REQUIRES), ORAL
     Route: 048
     Dates: start: 20050218, end: 20050605
  5. CAPASTAT SULFATE [Suspect]
     Indication: TUBERCULOSIS
     Dosage: 3 GRAM (1 GRAM, 3 IN 1 D, INTRAMUSCULAR
     Route: 030
     Dates: start: 20050218
  6. PYRAZINAMIDE [Concomitant]
  7. AMINOSALICYLATE SODIUM (AMINOSALICYLATE SODIUM) [Concomitant]
  8. DOMPERIDONE (DOMEPERIDONE) [Concomitant]

REACTIONS (8)
  - ANAEMIA [None]
  - ATRIOVENTRICULAR BLOCK SECOND DEGREE [None]
  - BLOOD PRESSURE ABNORMAL [None]
  - MITOCHONDRIAL TOXICITY [None]
  - NAUSEA [None]
  - SECONDARY AMYLOIDOSIS [None]
  - VERTIGO [None]
  - VOMITING [None]
